FAERS Safety Report 23287466 (Version 1)
Quarter: 2023Q4

REPORT INFORMATION
  Report Type: Report from Study
  Country: CN (occurrence: CN)
  Receive Date: 20231212
  Receipt Date: 20231212
  Transmission Date: 20240109
  Serious: Yes (Hospitalization)
  Sender: FDA-Public Use
  Company Number: CN-Eisai-EC-2023-154770

PATIENT
  Age: 55 Year
  Sex: Male
  Weight: 95 kg

DRUGS (22)
  1. LENVATINIB [Suspect]
     Active Substance: LENVATINIB
     Indication: Hepatocellular carcinoma
     Route: 048
     Dates: start: 20220422, end: 20220425
  2. LENVATINIB [Suspect]
     Active Substance: LENVATINIB
     Route: 048
     Dates: start: 20220501
  3. TORIPALIMAB [Suspect]
     Active Substance: TORIPALIMAB
     Indication: Hepatocellular carcinoma
     Dosage: JS001/PLACEBO
     Route: 042
     Dates: start: 20220422
  4. ROSUVASTATIN [Concomitant]
     Active Substance: ROSUVASTATIN
     Indication: Coronary artery disease
     Route: 048
     Dates: start: 20220315, end: 20220326
  5. ESOMEPRAZOLE [Concomitant]
     Active Substance: ESOMEPRAZOLE
     Indication: Chronic gastritis
     Route: 048
     Dates: start: 20220315, end: 20220326
  6. MOSAPRIDE CITRATE [Concomitant]
     Active Substance: MOSAPRIDE CITRATE
     Indication: Chronic gastritis
     Dosage: DOSE AND FREQUENCY UNKNOWN
     Route: 048
  7. PHLOROGLUCINOL [Concomitant]
     Active Substance: PHLOROGLUCINOL
     Indication: Cancer pain
     Dosage: DOSE AND FREQUENCY UNKNOWN
     Route: 042
  8. OMEPRAZOLE SODIUM [Concomitant]
     Active Substance: OMEPRAZOLE SODIUM
     Indication: Hyperchlorhydria
     Dosage: DOSE AND FREQUENCY UNKNOWN
     Route: 042
  9. GLUTATHIONE [Concomitant]
     Active Substance: GLUTATHIONE
     Indication: Hepatitis
     Dosage: DOSE AND FREQUENCY UNKNOWN
     Route: 042
  10. MEGESTROL ACETATE [Concomitant]
     Active Substance: MEGESTROL ACETATE
     Indication: Decreased appetite
     Dosage: DOSE AND FREQUENCY UNKNOWN
  11. MEGESTROL ACETATE [Concomitant]
     Active Substance: MEGESTROL ACETATE
     Indication: Dyspepsia
  12. MULTIENZYME [Concomitant]
     Indication: Dyspepsia
     Dosage: DOSE AND FREQUENCY UNKNOWN
  13. DOMPERIDONE [Concomitant]
     Active Substance: DOMPERIDONE
     Indication: Dyspepsia
     Dosage: DOSE AND FREQUENCY UNKNOWN
  14. KETOROLAC TROMETHAMINE [Concomitant]
     Active Substance: KETOROLAC TROMETHAMINE
     Indication: Cancer pain
     Dosage: DOSE AND FREQUENCY UNKNOWN
  15. COMPOUND CODEINE PHOSPHATE AND IBUPROFEN [Concomitant]
     Indication: Cancer pain
     Dosage: DOSE AND FREQUENCY UNKNOWN
  16. BUCINNAZINE HYDROCHLORIDE [Concomitant]
     Active Substance: BUCINNAZINE HYDROCHLORIDE
     Indication: Cancer pain
     Dosage: DOSE AND FREQUENCY UNKNOWN
  17. AMLODIPINE BESYLATE [Concomitant]
     Active Substance: AMLODIPINE BESYLATE
     Indication: Hypertension
     Dosage: DOSE AND FREQUENCY UNKNOWN
  18. NIFEDIPINE [Concomitant]
     Active Substance: NIFEDIPINE
     Indication: Hypertension
     Dosage: DOSE AND FREQUENCY UNKNOWN
  19. GLYCYRRHIZIN [Concomitant]
     Active Substance: GLYCYRRHIZIN
     Indication: Liver disorder
     Dosage: DOSE AND FREQUENCY UNKNOWN
  20. HYDROCHLOROTHIAZIDE\LOSARTAN POTASSIUM [Concomitant]
     Active Substance: HYDROCHLOROTHIAZIDE\LOSARTAN POTASSIUM
     Indication: Hypertension
     Dosage: DOSE AND FREQUENCY UNKNOWN
  21. HYDROTALCITE [Concomitant]
     Active Substance: HYDROTALCITE
     Indication: Chronic gastritis
     Dosage: DOSE AND FREQUENCY UNKNOWN
     Route: 048
     Dates: start: 20220315, end: 20220326
  22. AMINO ACIDS, SOURCE UNSPECIFIED [Concomitant]
     Active Substance: AMINO ACIDS, SOURCE UNSPECIFIED
     Indication: Fluid replacement
     Dosage: DOSE AND FREQUENCY UNKNOWN

REACTIONS (1)
  - Gingival bleeding [Recovered/Resolved]

NARRATIVE: CASE EVENT DATE: 20220426
